FAERS Safety Report 4379899-3 (Version None)
Quarter: 2004Q2

REPORT INFORMATION
  Report Type: 
  Country: None (occurrence: None)
  Receive Date: 20040614
  Receipt Date: 20040531
  Transmission Date: 20050107
  Serious: Yes (Death)
  Sender: FDA-Public Use
  Company Number: 2004216605AT

PATIENT
  Age: 53 Year
  Sex: Male

DRUGS (5)
  1. CYCLOPHOSPHAMIDE [Suspect]
     Indication: T-CELL LYMPHOMA
     Dosage: 750 MG/M2, DAY 1, CYCLIC,
  2. DOXORUBICIN HCL [Suspect]
     Indication: T-CELL LYMPHOMA
     Dosage: 50 MG/M2, DAY 1, CYCLIC,
  3. VINCRISTINE SULFATE [Suspect]
     Indication: T-CELL LYMPHOMA
     Dosage: 1.4 MG/M2, DAY 1, CYCLIC,
  4. DELTASONE [Suspect]
     Indication: T-CELL LYMPHOMA
     Dosage: 100 MG, DAYS 1-5, CYCLIC
  5. RADIOTHERAPY () [Suspect]
     Dosage: 36 GY,

REACTIONS (5)
  - ACUTE MYELOID LEUKAEMIA RECURRENT [None]
  - BRONCHOPULMONARY ASPERGILLOSIS [None]
  - LEUKAEMIA CUTIS [None]
  - MALIGNANT NEOPLASM PROGRESSION [None]
  - STEM CELL TRANSPLANT [None]
